FAERS Safety Report 10024453 (Version 2)
Quarter: 2014Q2

REPORT INFORMATION
  Report Type: Report from Study
  Country: DE (occurrence: DE)
  Receive Date: 20140320
  Receipt Date: 20140409
  Transmission Date: 20141212
  Serious: Yes (Hospitalization)
  Sender: FDA-Public Use
  Company Number: DE-JNJFOC-20140308882

PATIENT
  Age: 36 Year
  Sex: Male
  Weight: 51.26 kg

DRUGS (3)
  1. SIMPONI [Suspect]
     Indication: PRODUCT USED FOR UNKNOWN INDICATION
     Route: 058
  2. SIMPONI [Suspect]
     Indication: PRODUCT USED FOR UNKNOWN INDICATION
     Route: 058
  3. METEX [Concomitant]
     Indication: SPONDYLITIS
     Route: 065
     Dates: start: 20120223, end: 20131209

REACTIONS (1)
  - Abscess [Recovered/Resolved]
